FAERS Safety Report 16272454 (Version 2)
Quarter: 2019Q2

REPORT INFORMATION
  Report Type: Spontaneous
  Country: CA (occurrence: CA)
  Receive Date: 20190503
  Receipt Date: 20190508
  Transmission Date: 20190711
  Serious: Yes (Other)
  Sender: FDA-Public Use
  Company Number: CA-GLAXOSMITHKLINE-CA2019GSK078205

PATIENT
  Age: 46 Year
  Sex: Female

DRUGS (5)
  1. NASONEX [Suspect]
     Active Substance: MOMETASONE FUROATE
     Indication: PRODUCT USED FOR UNKNOWN INDICATION
     Dosage: UNK
  2. ADVIL [Suspect]
     Active Substance: IBUPROFEN
     Indication: PRODUCT USED FOR UNKNOWN INDICATION
     Dosage: UNK
  3. NUCALA [Suspect]
     Active Substance: MEPOLIZUMAB
     Indication: PRODUCT USED FOR UNKNOWN INDICATION
     Dosage: 100 MG, UNK
  4. VENTOLIN [Suspect]
     Active Substance: ALBUTEROL SULFATE
     Indication: PRODUCT USED FOR UNKNOWN INDICATION
     Dosage: UNK UNK, QOD
  5. BREO ELLIPTA [Suspect]
     Active Substance: FLUTICASONE FUROATE\VILANTEROL TRIFENATATE
     Indication: PRODUCT USED FOR UNKNOWN INDICATION
     Dosage: UNK

REACTIONS (21)
  - Pain [Unknown]
  - Nasopharyngitis [Unknown]
  - Sneezing [Unknown]
  - Chills [Unknown]
  - Bronchial obstruction [Unknown]
  - Influenza [Unknown]
  - Malaise [Unknown]
  - Drug intolerance [Unknown]
  - Rhinorrhoea [Unknown]
  - Wheezing [Unknown]
  - Pyrexia [Unknown]
  - Cough [Unknown]
  - Productive cough [Unknown]
  - Nasal congestion [Unknown]
  - Listless [Unknown]
  - Body temperature abnormal [Unknown]
  - Ear pain [Unknown]
  - Oropharyngeal pain [Unknown]
  - Increased viscosity of upper respiratory secretion [Unknown]
  - Sputum discoloured [Unknown]
  - Dyspnoea [Unknown]
